FAERS Safety Report 21258869 (Version 1)
Quarter: 2022Q3

REPORT INFORMATION
  Report Type: Report from Study
  Country: US (occurrence: None)
  Receive Date: 20220826
  Receipt Date: 20220826
  Transmission Date: 20221027
  Serious: Yes (Hospitalization, Other)
  Sender: FDA-Public Use
  Company Number: US-Merck Healthcare KGaA-9345942

PATIENT
  Age: 65 Year
  Sex: Female

DRUGS (3)
  1. MAVENCLAD [Suspect]
     Active Substance: CLADRIBINE
     Indication: Multiple sclerosis
     Dosage: YEAR ONE MONTH ONE THERAPY
     Route: 048
     Dates: start: 20210816
  2. MAVENCLAD [Suspect]
     Active Substance: CLADRIBINE
     Dosage: YEAR ONE MONTH TWO THERAPY
     Route: 048
     Dates: end: 20210919
  3. MAVENCLAD [Suspect]
     Active Substance: CLADRIBINE
     Dosage: YEAR TWO MONTH ONE THERAPY: PRESCRIBED AT A DOSE OF 20 MG DAYS 1 TO 4 AND 10 MG ON DAY 5
     Route: 048
     Dates: start: 20220819

REACTIONS (7)
  - Transient ischaemic attack [Unknown]
  - Brain stem infarction [Unknown]
  - Peripheral arterial occlusive disease [Unknown]
  - Fall [Unknown]
  - Fibula fracture [Unknown]
  - Poor peripheral circulation [Unknown]
  - Impaired healing [Recovering/Resolving]

NARRATIVE: CASE EVENT DATE: 20211004
